FAERS Safety Report 23676148 (Version 1)
Quarter: 2024Q1

REPORT INFORMATION
  Report Type: Report from Study
  Country: US (occurrence: US)
  Receive Date: 20240327
  Receipt Date: 20240327
  Transmission Date: 20240410
  Serious: Yes (Other)
  Sender: FDA-Public Use
  Company Number: US-ABBVIE-5564234

PATIENT
  Age: 63 Year
  Sex: Female
  Weight: 95 kg

DRUGS (2)
  1. SKYRIZI [Suspect]
     Active Substance: RISANKIZUMAB-RZAA
     Indication: Psoriasis
     Route: 058
     Dates: start: 20240217
  2. SKYRIZI [Suspect]
     Active Substance: RISANKIZUMAB-RZAA
     Route: 058
     Dates: start: 20211014

REACTIONS (1)
  - Liver function test increased [Recovered/Resolved]

NARRATIVE: CASE EVENT DATE: 20231108
